FAERS Safety Report 15798303 (Version 1)
Quarter: 2019Q1

REPORT INFORMATION
  Report Type: Spontaneous
  Country: US (occurrence: US)
  Receive Date: 20190108
  Receipt Date: 20190108
  Transmission Date: 20190417
  Serious: Yes (Death)
  Sender: FDA-Public Use
  Company Number: US-PFIZER INC-2019007857

PATIENT
  Age: 64 Year
  Sex: Male

DRUGS (4)
  1. AMPHETAMINE [Suspect]
     Active Substance: AMPHETAMINE
     Dosage: UNK
  2. KETAMINE HCL [Suspect]
     Active Substance: KETAMINE HYDROCHLORIDE
     Dosage: UNK
  3. SULFUR DIOXIDE [Suspect]
     Active Substance: SULFUR DIOXIDE
     Dosage: UNK
     Route: 055
  4. SULFUR DIOXIDE [Suspect]
     Active Substance: SULFUR DIOXIDE
     Dosage: UNK
     Route: 047

REACTIONS (2)
  - Death [Fatal]
  - Occupational exposure to product [Fatal]

NARRATIVE: CASE EVENT DATE: 2017
